FAERS Safety Report 4692981-6 (Version None)
Quarter: 2005Q2

REPORT INFORMATION
  Report Type: 
  Country: None (occurrence: None)
  Receive Date: 20050223
  Receipt Date: 20050223
  Transmission Date: 20051028
  Serious: Yes (Other)
  Sender: FDA-Public Use
  Company Number: None

PATIENT
  Age: 68 Year
  Sex: Female
  Weight: 68.0396 kg

DRUGS (2)
  1. NEURONTIN [Suspect]
     Dosage: 300 MG @ HS
     Dates: start: 20041001
  2. NEURONTIN [Suspect]
     Dosage: 300 MG @ HS
     Dates: start: 20041101

REACTIONS (1)
  - DRUG INEFFECTIVE [None]
